FAERS Safety Report 22257827 (Version 1)
Quarter: 2023Q2

REPORT INFORMATION
  Report Type: Spontaneous
  Country: US (occurrence: US)
  Receive Date: 20230427
  Receipt Date: 20230427
  Transmission Date: 20230721
  Serious: No
  Sender: FDA-Public Use
  Company Number: US-009507513-2303USA010944

PATIENT
  Age: 67 Year
  Sex: Male

DRUGS (6)
  1. TEMODAR [Suspect]
     Active Substance: TEMOZOLOMIDE
     Indication: Insulinoma
     Dosage: UNK
     Route: 048
  2. DIAZOXIDE [Concomitant]
     Active Substance: DIAZOXIDE
     Indication: Insulinoma
     Dosage: 100 MILLIGRAM, FOUR TIMES A DAY
  3. PREDNISONE [Concomitant]
     Active Substance: PREDNISONE
     Indication: Insulinoma
     Dosage: 10 MILLIGRAM, TWICE A DAY
  4. PASIREOTIDE [Concomitant]
     Active Substance: PASIREOTIDE
     Indication: Insulinoma
  5. CAPECITABINE [Concomitant]
     Active Substance: CAPECITABINE
     Indication: Insulinoma
  6. DEXTROSE [Concomitant]
     Active Substance: DEXTROSE\DEXTROSE MONOHYDRATE
     Indication: Insulinoma
     Dosage: UNK
     Route: 042

REACTIONS (1)
  - Product use in unapproved indication [Unknown]
